FAERS Safety Report 23097850 (Version 1)
Quarter: 2023Q4

REPORT INFORMATION
  Report Type: Spontaneous
  Country: US (occurrence: None)
  Receive Date: 20231020
  Receipt Date: 20231020
  Transmission Date: 20240110
  Serious: No
  Sender: FDA-Public Use
  Company Number: None

PATIENT
  Age: 58 Year
  Sex: Female

DRUGS (4)
  1. ACTEMRA [Suspect]
     Active Substance: TOCILIZUMAB
     Indication: Tardive dyskinesia
     Dates: start: 20230502
  2. JARDIANCE [Concomitant]
     Active Substance: EMPAGLIFLOZIN
  3. OZEMPIC [Concomitant]
     Active Substance: SEMAGLUTIDE
  4. REPATHA [Concomitant]

REACTIONS (3)
  - Tardive dyskinesia [None]
  - Condition aggravated [None]
  - Quality of life decreased [None]
